FAERS Safety Report 17791447 (Version 1)
Quarter: 2020Q2

REPORT INFORMATION
  Report Type: Spontaneous
  Country: CZ (occurrence: CZ)
  Receive Date: 20200515
  Receipt Date: 20200515
  Transmission Date: 20200714
  Serious: Yes (Other)
  Sender: FDA-Public Use
  Company Number: CZ-PFIZER INC-2020191667

PATIENT
  Age: 40 Year
  Sex: Female

DRUGS (4)
  1. TRAMADOL. [Suspect]
     Active Substance: TRAMADOL
     Dosage: 40 PUSHES OF TRAMADOL GTT 4X/DAY
  2. ALPRAZOLAM. [Suspect]
     Active Substance: ALPRAZOLAM
     Dosage: UNK
  3. CLONAZEPAM. [Suspect]
     Active Substance: CLONAZEPAM
  4. TRAMADOL. [Suspect]
     Active Substance: TRAMADOL
     Dosage: 5X 12 PUSHES PER DAY

REACTIONS (1)
  - Drug abuse [Unknown]
